FAERS Safety Report 6806097-3 (Version None)
Quarter: 2010Q2

REPORT INFORMATION
  Report Type: 
  Country: None (occurrence: None)
  Receive Date: 20100629
  Receipt Date: 20100617
  Transmission Date: 20101027
  Serious: Yes (Death, Other)
  Sender: FDA-Public Use
  Company Number: CN-GENENTECH-303247

PATIENT

DRUGS (1)
  1. RITUXIMAB [Suspect]
     Indication: B-CELL LYMPHOMA RECURRENT
     Dosage: 375 MG/M2, UNK
     Route: 042

REACTIONS (3)
  - HEPATIC FAILURE [None]
  - HEPATIC FUNCTION ABNORMAL [None]
  - HEPATITIS B DNA INCREASED [None]
